FAERS Safety Report 15610893 (Version 1)
Quarter: 2018Q4

REPORT INFORMATION
  Report Type: Spontaneous
  Country: US (occurrence: US)
  Receive Date: 20181113
  Receipt Date: 20181113
  Transmission Date: 20190205
  Serious: No
  Sender: FDA-Public Use
  Company Number: US-ROCHE-2142076

PATIENT
  Sex: Female

DRUGS (16)
  1. LUCENTIS [Suspect]
     Active Substance: RANIBIZUMAB
     Indication: DIABETIC RETINOPATHY
  2. LOSARTANA POTASSICA [Concomitant]
     Active Substance: LOSARTAN
     Route: 065
  3. POTASSIUM CHLORIDE. [Concomitant]
     Active Substance: POTASSIUM CHLORIDE
     Dosage: 10 MEQ ER
     Route: 065
  4. CITALOPRAM [Concomitant]
     Active Substance: CITALOPRAM HYDROBROMIDE
     Route: 065
  5. FUROSEMIDE. [Concomitant]
     Active Substance: FUROSEMIDE
     Route: 065
  6. METOPROLOL TARTRATE. [Concomitant]
     Active Substance: METOPROLOL TARTRATE
     Route: 065
  7. RANITIDINE. [Concomitant]
     Active Substance: RANITIDINE
     Route: 065
  8. LUCENTIS [Suspect]
     Active Substance: RANIBIZUMAB
     Indication: MACULAR OEDEMA
  9. LEVEMIR [Concomitant]
     Active Substance: INSULIN DETEMIR
  10. VENTOLIN HFA [Concomitant]
     Active Substance: ALBUTEROL SULFATE
  11. LUCENTIS [Suspect]
     Active Substance: RANIBIZUMAB
     Indication: DIABETES MELLITUS
     Dosage: LEFT EYE SOL 0.5 MG 0.05 ML
     Route: 050
  12. JANTOVEN [Concomitant]
     Active Substance: WARFARIN SODIUM
     Route: 065
  13. GABAPENTIN. [Concomitant]
     Active Substance: GABAPENTIN
     Route: 065
  14. NOVOLOG [Concomitant]
     Active Substance: INSULIN ASPART
     Route: 065
  15. OMEPRAZOLE. [Concomitant]
     Active Substance: OMEPRAZOLE
     Route: 065
  16. PAROXETIN [Concomitant]
     Active Substance: PAROXETINE HYDROCHLORIDE
     Route: 065

REACTIONS (2)
  - No adverse event [Unknown]
  - Drug ineffective [Unknown]
